FAERS Safety Report 5663085-0 (Version None)
Quarter: 2008Q1

REPORT INFORMATION
  Report Type: 
  Country: None (occurrence: None)
  Receive Date: 20080313
  Receipt Date: 20080227
  Transmission Date: 20080703
  Serious: Yes (Hospitalization, Congenital Anomaly)
  Sender: FDA-Public Use
  Company Number: A0683128A

PATIENT
  Sex: Male

DRUGS (6)
  1. PAXIL CR [Suspect]
     Indication: PANIC DISORDER
     Dates: start: 20030101
  2. PAXIL [Concomitant]
     Indication: PANIC DISORDER
     Dates: start: 19990101, end: 20020101
  3. ALDOMET [Concomitant]
     Dosage: 500MG THREE TIMES PER DAY
  4. ZOFRAN [Concomitant]
  5. VITAMIN TAB [Concomitant]
  6. TIGAN [Concomitant]

REACTIONS (2)
  - CRANIOSYNOSTOSIS [None]
  - DRUG EXPOSURE DURING PREGNANCY [None]
